FAERS Safety Report 8005843-3 (Version None)
Quarter: 2011Q4

REPORT INFORMATION
  Report Type: 
  Country: None (occurrence: None)
  Receive Date: 20111223
  Receipt Date: 20111031
  Transmission Date: 20120403
  Serious: Yes (Other)
  Sender: FDA-Public Use
  Company Number: US-ASTRAZENECA-2011SE49897

PATIENT
  Age: 47 Year
  Sex: Female

DRUGS (2)
  1. SEROQUEL [Suspect]
     Route: 048
  2. SEROQUEL [Suspect]
     Route: 048

REACTIONS (9)
  - DRUG WITHDRAWAL SYNDROME [None]
  - HEADACHE [None]
  - ABDOMINAL PAIN UPPER [None]
  - CONVULSION [None]
  - NAUSEA [None]
  - DRUG DOSE OMISSION [None]
  - MALAISE [None]
  - FEELING ABNORMAL [None]
  - VOMITING [None]
